FAERS Safety Report 9800384 (Version 1)
Quarter: 2014Q1

REPORT INFORMATION
  Report Type: Spontaneous
  Country: GB (occurrence: GB)
  Receive Date: 20140106
  Receipt Date: 20140106
  Transmission Date: 20141002
  Serious: Yes (Disabling)
  Sender: FDA-Public Use
  Company Number: GB-AMGEN-GBRSP2014000258

PATIENT
  Age: 86 Year
  Sex: 0
  Weight: 61 kg

DRUGS (14)
  1. PROLIA [Suspect]
     Indication: OSTEOPOROSIS
     Dosage: UNK
     Route: 058
     Dates: start: 20120521
  2. ASPIRIN [Concomitant]
     Dosage: 75 MG, QD
  3. BECONASE [Concomitant]
  4. CO-CODAMOL [Concomitant]
     Route: 048
  5. COLECALCIFEROL [Concomitant]
     Dosage: 10000 IU, QWK
  6. EZETIMIBE [Concomitant]
     Dosage: 10 MG, QD
  7. FELODIPINE [Concomitant]
     Dosage: 2.5 MG, QD
  8. GAVISCON ADVANCE [Concomitant]
     Indication: DYSPEPSIA
     Dosage: 10 ML, AS NECESSARY
     Route: 048
     Dates: start: 20120823
  9. LANSOPRAZOLE [Concomitant]
     Dosage: 30 MG, QD
  10. LOSARTAN [Concomitant]
     Dosage: 25 MG, QD
  11. NITRAZEPAM [Concomitant]
     Dosage: 5 MG, QD
  12. QUININE BISULPHATE [Concomitant]
     Indication: MUSCLE SPASMS
     Dosage: 300 MG, UNK
     Route: 048
     Dates: start: 20090519
  13. SERETIDE [Concomitant]
     Dosage: 1 DF, BID
     Route: 045
  14. SPIRIVA [Concomitant]
     Dosage: 18 MUG, UNK
     Route: 045

REACTIONS (6)
  - Bone pain [Not Recovered/Not Resolved]
  - Myalgia [Not Recovered/Not Resolved]
  - Skin discolouration [Not Recovered/Not Resolved]
  - Local swelling [Recovering/Resolving]
  - Erythema [Recovering/Resolving]
  - Pain in extremity [Not Recovered/Not Resolved]
